FAERS Safety Report 8076396-9 (Version None)
Quarter: 2012Q1

REPORT INFORMATION
  Report Type: 
  Country: None (occurrence: None)
  Receive Date: 20120127
  Receipt Date: 20120127
  Transmission Date: 20120608
  Serious: Yes (Life-Threatening, Hospitalization)
  Sender: FDA-Public Use
  Company Number: None

PATIENT
  Sex: Female
  Weight: 88.45 kg

DRUGS (1)
  1. PAXIL [Suspect]
     Indication: GENERALISED ANXIETY DISORDER
     Dosage: 20MGS
     Route: 048
     Dates: start: 20111219, end: 20120108

REACTIONS (12)
  - GASTROINTESTINAL DISORDER [None]
  - DRUG WITHDRAWAL SYNDROME [None]
  - ABNORMAL BEHAVIOUR [None]
  - PANIC ATTACK [None]
  - AGITATION [None]
  - IMPAIRED DRIVING ABILITY [None]
  - IMPAIRED WORK ABILITY [None]
  - FEELING ABNORMAL [None]
  - GAIT DISTURBANCE [None]
  - SLOW SPEECH [None]
  - SUICIDAL IDEATION [None]
  - DYSARTHRIA [None]
